FAERS Safety Report 8965623 (Version 1)
Quarter: 2012Q4

REPORT INFORMATION
  Report Type: Spontaneous
  Country: US (occurrence: None)
  Receive Date: 20121212
  Receipt Date: 20121212
  Transmission Date: 20130627
  Serious: Yes (Other)
  Sender: FDA-Public Use
  Company Number: None

PATIENT
  Age: 81 Year
  Sex: Female
  Weight: 72.58 kg

DRUGS (1)
  1. LANSOPRAZOLE [Suspect]
     Route: 048
     Dates: start: 20121130, end: 20121203

REACTIONS (4)
  - Chest discomfort [None]
  - Dyspnoea [None]
  - Product substitution issue [None]
  - Product quality issue [None]
